FAERS Safety Report 4641508-3 (Version None)
Quarter: 2005Q2

REPORT INFORMATION
  Report Type: 
  Country: None (occurrence: None)
  Receive Date: 20050421
  Receipt Date: 20050413
  Transmission Date: 20051028
  Serious: Yes (Other)
  Sender: FDA-Public Use
  Company Number: IT-GLAXOSMITHKLINE-B0378505A

PATIENT
  Age: 42 Year
  Sex: Male

DRUGS (1)
  1. VALACYCLOVIR HCL [Suspect]
     Indication: VARICELLA
     Dosage: 3G PER DAY
     Route: 048
     Dates: start: 20050405, end: 20050406

REACTIONS (3)
  - HALLUCINATION [None]
  - HYPERHIDROSIS [None]
  - HYPOTENSION [None]
